FAERS Safety Report 12172688 (Version 3)
Quarter: 2019Q1

REPORT INFORMATION
  Report Type: Spontaneous
  Country: FR (occurrence: FR)
  Receive Date: 20160311
  Receipt Date: 20190221
  Transmission Date: 20190417
  Serious: Yes (Congenital Anomaly, Other)
  Sender: FDA-Public Use
  Company Number: FR-ABBVIE-16P-056-1579598-00

PATIENT
  Sex: Male

DRUGS (1)
  1. DEPAKINE CHRONO [Suspect]
     Active Substance: VALPROATE SODIUM
     Indication: MATERNAL EXPOSURE TIMING UNSPECIFIED
     Route: 064

REACTIONS (23)
  - Intellectual disability [Unknown]
  - Feeding disorder [Recovered/Resolved]
  - Developmental delay [Unknown]
  - Dysmorphism [Not Recovered/Not Resolved]
  - Bronchitis [Unknown]
  - Hypertonia [Unknown]
  - Cleft palate [Recovered/Resolved]
  - Congenital anomaly [Unknown]
  - Tympanic membrane perforation [Not Recovered/Not Resolved]
  - Congenital hand malformation [Recovered/Resolved]
  - Hypospadias [Recovered/Resolved]
  - Polydactyly [Unknown]
  - Ear infection [Unknown]
  - Ear malformation [Unknown]
  - Myopia [Not Recovered/Not Resolved]
  - Poor sucking reflex [Unknown]
  - Deafness [Unknown]
  - Psychomotor retardation [Unknown]
  - Foetal exposure during pregnancy [Unknown]
  - Ill-defined disorder [Recovered/Resolved]
  - Malnutrition [Unknown]
  - Hydrocele [Unknown]
  - Cryptorchism [Unknown]

NARRATIVE: CASE EVENT DATE: 19991119
